FAERS Safety Report 4455096-8 (Version None)
Quarter: 2004Q3

REPORT INFORMATION
  Report Type: 
  Country: None (occurrence: None)
  Receive Date: 20040817
  Receipt Date: 20040831
  Transmission Date: 20050211
  Serious: Yes (Other)
  Sender: FDA-Public Use
  Company Number: WAES 0409USA00296

PATIENT
  Age: 84 Year
  Sex: Male

DRUGS (5)
  1. COZAAR [Suspect]
     Indication: HYPERTENSION
     Dosage: SEE IMAGE
     Route: 048
     Dates: start: 20010109, end: 20010219
  2. COZAAR [Suspect]
     Indication: HYPERTENSION
     Dosage: SEE IMAGE
     Route: 048
     Dates: start: 20011020, end: 20040405
  3. CYANOCOBALAMIN [Concomitant]
  4. OMEPRAL [Concomitant]
  5. PLETAL [Concomitant]

REACTIONS (1)
  - PANCYTOPENIA [None]
